FAERS Safety Report 23591742 (Version 1)
Quarter: 2024Q1

REPORT INFORMATION
  Report Type: Spontaneous
  Country: US (occurrence: US)
  Receive Date: 20240304
  Receipt Date: 20240304
  Transmission Date: 20240410
  Serious: Yes (Hospitalization, Other)
  Sender: FDA-Public Use
  Company Number: US-SANOFI-01961489

PATIENT
  Age: 83 Year
  Sex: Female

DRUGS (26)
  1. DUPIXENT [Suspect]
     Active Substance: DUPILUMAB
     Indication: Dermatitis atopic
     Dosage: 1 DF, 1X
     Dates: start: 20200204, end: 20200204
  2. DUPIXENT [Suspect]
     Active Substance: DUPILUMAB
     Dosage: 300 MG QOW
  3. TYLENOL [Concomitant]
     Active Substance: ACETAMINOPHEN
     Indication: Pain
     Dosage: 2 DF, TID
  4. SODIUM BICARBONATE [Concomitant]
     Active Substance: SODIUM BICARBONATE
     Dosage: 2 DF, BID
  5. TORSEMIDE [Concomitant]
     Active Substance: TORSEMIDE
     Dosage: 10 MG, QD
  6. MEGACE [Concomitant]
     Active Substance: MEGESTROL ACETATE
     Dosage: 40 MG DAILY
  7. GABAPENTIN [Concomitant]
     Active Substance: GABAPENTIN
     Dosage: 300 MG EVERY EVENING
  8. NOVOLOG [Concomitant]
     Active Substance: INSULIN ASPART
     Dosage: INJECTS SLIDING SCALE 0-10 UNITS BEFORE MEALS AND AT BEDTIME
  9. MELATONIN [Concomitant]
     Active Substance: MELATONIN
     Dosage: TWO TABLETS EVERY NIGHT AS NEEDED,
  10. SINGULAIR [Concomitant]
     Active Substance: MONTELUKAST SODIUM
     Dosage: 10 MG, QD
  11. LYSTEDA [Concomitant]
     Active Substance: TRANEXAMIC ACID
     Dosage: 650 MG, QD
  12. JANUVIA [Concomitant]
     Active Substance: SITAGLIPTIN PHOSPHATE
     Dosage: JANUVIA 25 MG DAILY
  13. CALCITRIOL [Concomitant]
     Active Substance: CALCITRIOL
     Indication: Renal disorder
     Dosage: 0.25 UG, QD
  14. PERIACTIN [Concomitant]
     Active Substance: CYPROHEPTADINE HYDROCHLORIDE
     Dosage: 4 MG, TID
  15. ZOLOFT [Concomitant]
     Active Substance: SERTRALINE HYDROCHLORIDE
     Dosage: 50 MG, QD
  16. CYANOCOBALAMIN [Concomitant]
     Active Substance: CYANOCOBALAMIN
     Dosage: 1000 MCG SUBLINGUAL DAILY
     Route: 060
  17. XIFAXAN [Concomitant]
     Active Substance: RIFAXIMIN
     Dosage: 550 MG TWICE DAILY
  18. FOLIC ACID [Concomitant]
     Active Substance: FOLIC ACID
     Dosage: 1 MG DAILY
  19. ZOFRAN [Concomitant]
     Active Substance: ONDANSETRON HYDROCHLORIDE
     Indication: Nausea
     Dosage: 4 MG, BID
  20. PRANDIN [Concomitant]
     Active Substance: REPAGLINIDE
     Dosage: 0.5 MG, TID
  21. FERROUS SULFATE [Concomitant]
     Active Substance: FERROUS SULFATE
     Dosage: 1 DF, QOD
  22. CARBINOXAMINE MALEATE [Concomitant]
     Active Substance: CARBINOXAMINE MALEATE
     Dosage: 4 MG, BID
  23. OMEPRAZOLE [Concomitant]
     Active Substance: OMEPRAZOLE
     Dosage: 40 MG, QD
  24. MAGNESIUM OXIDE [Concomitant]
     Active Substance: MAGNESIUM OXIDE
     Dosage: 400 MG, BID
  25. VITAMIN C [Concomitant]
     Active Substance: ASCORBIC ACID
     Dosage: 500 MG, QD
  26. LACTULOSE [Concomitant]
     Active Substance: LACTULOSE
     Dosage: 20 G, TID

REACTIONS (1)
  - Chronic kidney disease [Unknown]
